FAERS Safety Report 25124451 (Version 1)
Quarter: 2025Q1

REPORT INFORMATION
  Report Type: Spontaneous
  Country: CN (occurrence: CN)
  Receive Date: 20250326
  Receipt Date: 20250326
  Transmission Date: 20250408
  Serious: Yes (Other)
  Sender: PFIZER
  Company Number: CN-PFIZER INC-PV202500035656

PATIENT
  Age: 69 Year
  Sex: Male
  Weight: 70 kg

DRUGS (1)
  1. AXITINIB [Suspect]
     Active Substance: AXITINIB
     Indication: Neoplasm
     Dosage: 1 DF, 2X/DAY
     Route: 048
     Dates: start: 20240501, end: 20250323

REACTIONS (4)
  - Toxicity to various agents [Recovering/Resolving]
  - Drug hypersensitivity [Recovering/Resolving]
  - Mouth ulceration [Recovering/Resolving]
  - Rash erythematous [Recovering/Resolving]

NARRATIVE: CASE EVENT DATE: 20250220
